FAERS Safety Report 10973599 (Version 1)
Quarter: 2015Q2

REPORT INFORMATION
  Report Type: Spontaneous
  Country: US (occurrence: US)
  Receive Date: 20150401
  Receipt Date: 20150401
  Transmission Date: 20150821
  Serious: No
  Sender: FDA-Public Use
  Company Number: US-SUN PHARMACEUTICAL INDUSTRIES LTD-2014SUN01189

PATIENT

DRUGS (1)
  1. PROMETHAZINE HCL ORAL SOLUTION 6.25MG/5ML [Suspect]
     Active Substance: PROMETHAZINE HYDROCHLORIDE
     Indication: NAUSEA
     Dosage: 1 TABLESPOON, BID
     Route: 048

REACTIONS (3)
  - Product physical consistency issue [Unknown]
  - Nausea [Unknown]
  - Drug ineffective [Unknown]
